FAERS Safety Report 8509218-X (Version None)
Quarter: 2012Q3

REPORT INFORMATION
  Report Type: 
  Country: None (occurrence: None)
  Receive Date: 20120713
  Receipt Date: 20120709
  Transmission Date: 20120928
  Serious: Yes (Hospitalization, Other)
  Sender: FDA-Public Use
  Company Number: US-ROCHE-1077537

PATIENT
  Sex: Male

DRUGS (3)
  1. PEGASYS [Suspect]
     Indication: HEPATITIS C
     Dates: start: 20120201
  2. TELAPREVIR [Suspect]
     Indication: HEPATITIS C
     Dates: end: 20120424
  3. RIBAVIRIN [Suspect]
     Indication: HEPATITIS C
     Dates: start: 20120201

REACTIONS (5)
  - SINUSITIS [None]
  - LETHARGY [None]
  - GASTRIC DISORDER [None]
  - DIARRHOEA [None]
  - WHITE BLOOD CELL COUNT DECREASED [None]
